FAERS Safety Report 24458639 (Version 1)
Quarter: 2024Q4

REPORT INFORMATION
  Report Type: Spontaneous
  Country: DE (occurrence: DE)
  Receive Date: 20241018
  Receipt Date: 20241018
  Transmission Date: 20250114
  Serious: Yes (Death)
  Sender: BLUEPRINT MEDICINES
  Company Number: DE-Blueprint Medicines Corporation-SP-DE-2024-002110

PATIENT

DRUGS (1)
  1. AVAPRITINIB [Suspect]
     Active Substance: AVAPRITINIB
     Indication: Advanced systemic mastocytosis
     Route: 065

REACTIONS (1)
  - Death [Fatal]
